FAERS Safety Report 4435297-5 (Version None)
Quarter: 2004Q3

REPORT INFORMATION
  Report Type: 
  Country: None (occurrence: None)
  Receive Date: 20040826
  Receipt Date: 20040811
  Transmission Date: 20050211
  Serious: Yes (Disabling)
  Sender: FDA-Public Use
  Company Number: 2004-BL-00093BL

PATIENT
  Age: 72 Year
  Sex: Male

DRUGS (4)
  1. SPIRIVA [Suspect]
     Indication: CHRONIC OBSTRUCTIVE AIRWAYS DISEASE
     Dosage: 18 MCG (18 MCG, 1 IN 24 HR)
     Route: 055
     Dates: start: 20040303, end: 20040304
  2. DUOVENT (DUOVENT) [Concomitant]
  3. MEDROL [Concomitant]
  4. THEOPHYLLINE [Concomitant]

REACTIONS (1)
  - DYSPNOEA EXACERBATED [None]
